FAERS Safety Report 9492148 (Version 1)
Quarter: 2013Q3

REPORT INFORMATION
  Report Type: Spontaneous
  Country: CH (occurrence: CH)
  Receive Date: 20130830
  Receipt Date: 20130830
  Transmission Date: 20140515
  Serious: Yes (Other)
  Sender: FDA-Public Use
  Company Number: CH-GILEAD-2013-0081737

PATIENT
  Age: 26 Year
  Sex: Female

DRUGS (4)
  1. ATRIPLA [Suspect]
     Indication: ACUTE HIV INFECTION
     Dates: end: 201301
  2. PREDNISONE [Concomitant]
     Indication: PRODUCT USED FOR UNKNOWN INDICATION
     Dosage: 75 MG, QD
  3. PREDNISONE [Concomitant]
     Dosage: 25 MG, QD
     Dates: end: 20130213
  4. PREDNISONE [Concomitant]
     Dosage: 20 MG, QD
     Dates: start: 20130214

REACTIONS (1)
  - Haemolytic anaemia [Recovered/Resolved]
